FAERS Safety Report 5150260-7 (Version None)
Quarter: 2006Q4

REPORT INFORMATION
  Report Type: 
  Country: None (occurrence: None)
  Receive Date: 20061109
  Receipt Date: 20061109
  Transmission Date: 20070319
  Serious: Yes (Hospitalization)
  Sender: FDA-Public Use
  Company Number: None

PATIENT
  Sex: Female
  Weight: 51.2565 kg

DRUGS (11)
  1. GEMCITABINE [Suspect]
     Indication: PANCREATIC CARCINOMA METASTATIC
     Dosage: 1000MG/M2 DAY 1 + 15 IV
     Route: 042
     Dates: start: 20061027
  2. CISPLATIN [Suspect]
     Indication: PANCREATIC CARCINOMA METASTATIC
     Dosage: 20MG/M2 DAY 1 + 15 IV
     Route: 042
     Dates: start: 20061027
  3. BEVACIZUMAB [Suspect]
     Indication: PANCREATIC CARCINOMA METASTATIC
     Dosage: 10MG/KG DAY 1 + 15 IV
     Route: 042
     Dates: start: 20061027
  4. FENTANYL [Concomitant]
     Route: 062
  5. KYTRIL [Concomitant]
  6. DEXAMETHASONE TAB [Concomitant]
  7. PERCOCET [Concomitant]
  8. LORAZEPAM [Concomitant]
  9. COLACE [Concomitant]
  10. SENNA [Concomitant]
  11. LACTULOSE [Concomitant]

REACTIONS (2)
  - NAUSEA [None]
  - VOMITING [None]
